FAERS Safety Report 9778007 (Version 1)
Quarter: 2013Q4

REPORT INFORMATION
  Report Type: Spontaneous
  Country: AU (occurrence: AU)
  Receive Date: 20131223
  Receipt Date: 20131223
  Transmission Date: 20140711
  Serious: Yes (Life-Threatening, Hospitalization)
  Sender: FDA-Public Use
  Company Number: AU-009507513-1312AUS008106

PATIENT
  Age: 56 Year
  Sex: Male

DRUGS (5)
  1. RIBAVIRIN [Suspect]
     Indication: LIVER DISORDER
     Dosage: 600 MG, UNK
     Route: 048
     Dates: start: 20120810
  2. INTERFERON ALFA-2A [Suspect]
     Indication: LIVER DISORDER
     Dosage: 180 MICROGRAM, UNK
     Dates: start: 20120810
  3. SUBOXONE [Concomitant]
  4. SOMAC [Concomitant]
  5. ZOLOFT [Concomitant]

REACTIONS (2)
  - Glomerulonephritis [Unknown]
  - Vasculitis [Unknown]
